FAERS Safety Report 4466175-3 (Version None)
Quarter: 2004Q3

REPORT INFORMATION
  Report Type: 
  Country: None (occurrence: None)
  Receive Date: 20040928
  Receipt Date: 20040928
  Transmission Date: 20050211
  Serious: Yes (Other)
  Sender: FDA-Public Use
  Company Number: None

PATIENT
  Age: 46 Year
  Sex: Female
  Weight: 52.1637 kg

DRUGS (1)
  1. CRYSELLE [Suspect]
     Indication: CONTRACEPTION
     Dosage: ONCE PO QD
     Route: 048
     Dates: start: 20040910

REACTIONS (1)
  - RASH GENERALISED [None]
